FAERS Safety Report 4511024-8 (Version None)
Quarter: 2004Q4

REPORT INFORMATION
  Report Type: 
  Country: None (occurrence: None)
  Receive Date: 20041018
  Receipt Date: 20040929
  Transmission Date: 20050328
  Serious: No
  Sender: FDA-Public Use
  Company Number: 209352

PATIENT
  Age: 40 Year
  Sex: Female

DRUGS (1)
  1. XOLAIR [Suspect]
     Dosage: SUBCUTANEOUS
     Route: 058

REACTIONS (2)
  - ARTHRITIS [None]
  - PSORIASIS [None]
